FAERS Safety Report 24446987 (Version 1)
Quarter: 2024Q4

REPORT INFORMATION
  Report Type: Spontaneous
  Country: US (occurrence: US)
  Receive Date: 20241016
  Receipt Date: 20241016
  Transmission Date: 20250114
  Serious: No
  Sender: MYLAN
  Company Number: US-MYLANLABS-2024M1091801

PATIENT
  Sex: Female
  Weight: 68.04 kg

DRUGS (1)
  1. ALPRAZOLAM [Suspect]
     Active Substance: ALPRAZOLAM
     Indication: Anxiety
     Dosage: 0.5 MILLIGRAM, TID (3X TIMES DAY)
     Route: 048

REACTIONS (2)
  - Diarrhoea [Unknown]
  - Product odour abnormal [Unknown]
